FAERS Safety Report 5147241-6 (Version None)
Quarter: 2006Q4

REPORT INFORMATION
  Report Type: 
  Country: None (occurrence: None)
  Receive Date: 20061106
  Receipt Date: 20061021
  Transmission Date: 20070319
  Serious: Yes (Other)
  Sender: FDA-Public Use
  Company Number: 2006108712

PATIENT
  Age: 67 Year
  Sex: Male
  Weight: 72.5755 kg

DRUGS (5)
  1. CHANTIX [Suspect]
     Indication: SMOKING CESSATION THERAPY
     Dates: start: 20060101
  2. LIPITOR [Concomitant]
  3. METOPROLOL [Concomitant]
  4. FLONASE [Concomitant]
  5. SPIRIVA [Concomitant]

REACTIONS (2)
  - AORTIC STENOSIS [None]
  - DISEASE PROGRESSION [None]
